FAERS Safety Report 11876033 (Version 4)
Quarter: 2016Q1

REPORT INFORMATION
  Report Type: Report from Study
  Country: US (occurrence: CH)
  Receive Date: 20151229
  Receipt Date: 20160303
  Transmission Date: 20160526
  Serious: Yes (Death, Hospitalization)
  Sender: FDA-Public Use
  Company Number: US-PFIZER INC-2015459995

PATIENT
  Age: 65 Year
  Sex: Male
  Weight: 85 kg

DRUGS (12)
  1. VITAMIN B12 [Concomitant]
     Active Substance: CYANOCOBALAMIN
     Dosage: 1000 MCG/ML
     Route: 030
  2. COMPAZINE [Concomitant]
     Active Substance: PROCHLORPERAZINE MALEATE
     Indication: PROPHYLAXIS OF NAUSEA AND VOMITING
     Dosage: 10 MG (1 TABLET), EVERY 6 HOURS, AS NEEDED
     Route: 048
  3. PALBOCICLIB [Suspect]
     Active Substance: PALBOCICLIB
     Indication: MALIGNANT NEOPLASM OF AMPULLA OF VATER
     Dosage: 75 MG, 1X/DAY
     Route: 048
     Dates: start: 20151113, end: 20151217
  4. ZYRTEC [Concomitant]
     Active Substance: CETIRIZINE HYDROCHLORIDE
     Indication: HYPERSENSITIVITY
     Dosage: 10 MG, 1X/DAY
     Route: 048
  5. PD-325,901 [Suspect]
     Active Substance: INVESTIGATIONAL PRODUCT
     Indication: MALIGNANT NEOPLASM OF AMPULLA OF VATER
     Dosage: 5 MG, 1X/DAY
     Route: 048
     Dates: start: 20151113, end: 20151217
  6. FLONASE /00908302/ [Concomitant]
     Active Substance: MOMETASONE FUROATE
     Indication: HYPERSENSITIVITY
     Dosage: 50 MCG/ACTUATION NASAL SPRAY, 2 SPRAYS BY NASAL ROUTE DAILY
     Route: 045
  7. ATENOLOL. [Concomitant]
     Active Substance: ATENOLOL
     Indication: HYPERTENSION
     Dosage: 25 MG (1 TABLET), 1X/DAY
     Route: 048
  8. TESSALON [Concomitant]
     Active Substance: BENZONATATE
     Indication: COUGH
     Dosage: 100 MG (1 CAPSULE), 3X/DAY
     Route: 048
  9. ALBUTEROL. [Concomitant]
     Active Substance: ALBUTEROL
     Indication: WHEEZING
     Dosage: 90 MCG/ACTUATION INHALER, INHALE 2 PUFFS EVERY 6 HOURS, AS NEEDED
     Route: 055
  10. CODEINE [Concomitant]
     Active Substance: CODEINE
     Indication: ABDOMINAL PAIN
     Dosage: UNK
     Route: 048
     Dates: end: 20151218
  11. TRIAMCINOLONE ACETONIDE. [Concomitant]
     Active Substance: TRIAMCINOLONE ACETONIDE
     Indication: RASH
     Dosage: 0.1 %, 2X/DAY, AS NEEDED
     Route: 061
  12. LOVASTATIN. [Concomitant]
     Active Substance: LOVASTATIN
     Indication: BLOOD CHOLESTEROL
     Dosage: 20 MG (1 TABLET), DAILY (AT EVENING)
     Route: 048

REACTIONS (5)
  - Neutrophil count decreased [Fatal]
  - Malignant neoplasm of ampulla of Vater [Fatal]
  - Lung infection [Fatal]
  - Febrile neutropenia [Fatal]
  - Disease progression [Fatal]

NARRATIVE: CASE EVENT DATE: 20151217
